FAERS Safety Report 12437375 (Version 1)
Quarter: 2016Q2

REPORT INFORMATION
  Report Type: Report from Study
  Country: US (occurrence: US)
  Receive Date: 20160606
  Receipt Date: 20160606
  Transmission Date: 20160815
  Serious: No
  Sender: FDA-Public Use
  Company Number: US-AMGEN-USASL2016069318

PATIENT

DRUGS (3)
  1. ENBREL [Suspect]
     Active Substance: ETANERCEPT
     Indication: RHEUMATOID ARTHRITIS
     Dosage: UNK
     Route: 065
  2. TURMERIC [Concomitant]
     Active Substance: TURMERIC
  3. MARIJUANA [Concomitant]
     Active Substance: CANNABIS SATIVA SUBSP. INDICA TOP

REACTIONS (4)
  - Drug effect incomplete [Unknown]
  - Feeling abnormal [Unknown]
  - Weight decreased [Unknown]
  - Stress [Unknown]
